FAERS Safety Report 13800330 (Version 3)
Quarter: 2017Q3

REPORT INFORMATION
  Report Type: Spontaneous
  Country: JP (occurrence: JP)
  Receive Date: 20170727
  Receipt Date: 20170929
  Transmission Date: 20171127
  Serious: Yes (Other)
  Sender: FDA-Public Use
  Company Number: JP-ASTRAZENECA-2017SE73018

PATIENT
  Age: 19582 Day
  Sex: Female
  Weight: 50 kg

DRUGS (10)
  1. TULOBUTEROL:TAPE HMT [Concomitant]
     Indication: BRONCHITIS CHRONIC
     Route: 062
  2. SUMILU STICK [Concomitant]
     Dosage: AS REQUIRED
     Route: 065
     Dates: start: 20170214
  3. ZOLPIDEM TARTRATE. [Concomitant]
     Active Substance: ZOLPIDEM TARTRATE
     Indication: INSOMNIA
     Route: 048
  4. LOXONIN [Concomitant]
     Active Substance: LOXOPROFEN SODIUM
     Dosage: 100.0MG AS REQUIRED
     Route: 062
     Dates: start: 20170705
  5. NEXIUM [Suspect]
     Active Substance: ESOMEPRAZOLE MAGNESIUM
     Indication: GASTRIC ULCER
     Route: 048
     Dates: start: 20170705, end: 20170708
  6. SANMEL [Concomitant]
     Indication: GASTRIC ULCER
     Route: 048
     Dates: start: 20170705
  7. ADOAIR [Concomitant]
     Active Substance: FLUTICASONE PROPIONATE\SALMETEROL XINAFOATE
     Indication: BRONCHITIS CHRONIC
     Route: 055
     Dates: start: 20151119
  8. SOLANAX [Concomitant]
     Active Substance: ALPRAZOLAM
     Route: 048
     Dates: start: 20150817
  9. AMLODIPINE [Concomitant]
     Active Substance: AMLODIPINE BESYLATE
     Route: 048
     Dates: start: 20140422
  10. CLARITHROMYCIN. [Concomitant]
     Active Substance: CLARITHROMYCIN
     Indication: BRONCHITIS CHRONIC
     Route: 048

REACTIONS (2)
  - Drug eruption [Recovered/Resolved]
  - Stevens-Johnson syndrome [Recovered/Resolved]

NARRATIVE: CASE EVENT DATE: 20170708
